FAERS Safety Report 6540187-8 (Version None)
Quarter: 2010Q1

REPORT INFORMATION
  Report Type: 
  Country: None (occurrence: None)
  Receive Date: 20100115
  Receipt Date: 20100105
  Transmission Date: 20100710
  Serious: Yes (Death, Hospitalization)
  Sender: FDA-Public Use
  Company Number: GB-MEDIMMUNE-MEDI-0010090

PATIENT
  Sex: Male

DRUGS (1)
  1. SYNAGIS [Suspect]
     Dates: start: 20091001, end: 20091215

REACTIONS (3)
  - CARDIAC ARREST [None]
  - ILL-DEFINED DISORDER [None]
  - PYREXIA [None]
